FAERS Safety Report 7692879-5 (Version None)
Quarter: 2011Q3

REPORT INFORMATION
  Report Type: 
  Country: None (occurrence: None)
  Receive Date: 20110816
  Receipt Date: 20110804
  Transmission Date: 20111222
  Serious: Yes (Life-Threatening)
  Sender: FDA-Public Use
  Company Number: TCI2011A04335

PATIENT
  Age: 55 Year
  Sex: Male

DRUGS (8)
  1. ACTOS [Suspect]
     Indication: DIABETES MELLITUS
     Dosage: 15 MG (15 MG, 1 IN 1 D)
     Route: 048
     Dates: start: 20100423, end: 20110719
  2. ARTIST (CARVEDILOL) [Concomitant]
  3. LIPITOR [Concomitant]
  4. ASPIRIN [Concomitant]
  5. ISOSORBIDE MONONITRATE [Concomitant]
  6. ZETIA [Concomitant]
  7. DIOVAN [Concomitant]
  8. ALLOPURINOL [Concomitant]

REACTIONS (2)
  - HAEMATURIA [None]
  - BLADDER CANCER [None]
